FAERS Safety Report 5792687-6 (Version None)
Quarter: 2008Q2

REPORT INFORMATION
  Report Type: 
  Country: None (occurrence: None)
  Receive Date: 20080624
  Receipt Date: 20080611
  Transmission Date: 20081010
  Serious: Yes (Other)
  Sender: FDA-Public Use
  Company Number: 2008AL002745

PATIENT
  Age: 72 Year
  Sex: Female
  Weight: 56.6996 kg

DRUGS (5)
  1. DIGOXIN [Suspect]
     Indication: HEART RATE IRREGULAR
     Dosage: 0.25MG , QD,  PO;  FEW YEARS
     Route: 048
  2. DOXAZOFIN-4MG [Concomitant]
  3. ATENOLOL [Concomitant]
  4. FELOPINE-10MG [Concomitant]
  5. HYDROCHLOROTHIAZIDE [Concomitant]

REACTIONS (3)
  - CARDIOACTIVE DRUG LEVEL INCREASED [None]
  - DIZZINESS [None]
  - DYSPNOEA [None]
